FAERS Safety Report 24352939 (Version 1)
Quarter: 2024Q3

REPORT INFORMATION
  Report Type: Report from Study
  Country: RO (occurrence: RO)
  Receive Date: 20240923
  Receipt Date: 20240923
  Transmission Date: 20241017
  Serious: No
  Sender: ROCHE
  Company Number: RO-ROCHE-3475323

PATIENT
  Age: 73 Year
  Sex: Female
  Weight: 63.0 kg

DRUGS (1)
  1. HERCEPTIN [Suspect]
     Active Substance: TRASTUZUMAB
     Indication: Product used for unknown indication
     Dosage: 600MG/5ML (ONCE ON THE LEFT, ONCE ON THE RIGHT, EVERY 21 DAYS)
     Route: 065
     Dates: start: 20230919

REACTIONS (1)
  - Cough [Unknown]
